FAERS Safety Report 19452108 (Version 1)
Quarter: 2021Q2

REPORT INFORMATION
  Report Type: Spontaneous
  Country: US (occurrence: US)
  Receive Date: 20210622
  Receipt Date: 20210622
  Transmission Date: 20210717
  Serious: No
  Sender: FDA-Public Use
  Company Number: None

PATIENT
  Age: 86 Year
  Sex: Female
  Weight: 58.97 kg

DRUGS (26)
  1. CRESTOR [Concomitant]
     Active Substance: ROSUVASTATIN CALCIUM
  2. LOPEDIMIDE [Concomitant]
  3. COLCHCINE [Concomitant]
  4. DICYCLOMINE 10MG CAPSULES. GENERIC NAME: DICYCLOMINE CAPSULES MYLAN 00378161001 [Suspect]
     Active Substance: DICYCLOMINE HYDROCHLORIDE
     Indication: CROHN^S DISEASE
     Route: 048
     Dates: start: 20210123, end: 20210525
  5. AMLODIPINE [Concomitant]
     Active Substance: AMLODIPINE BESYLATE
  6. LASIX [Concomitant]
     Active Substance: FUROSEMIDE
  7. DICYCLOMINE 10MG CAPSULES. GENERIC NAME: DICYCLOMINE CAPSULES MYLAN 00378161001 [Suspect]
     Active Substance: DICYCLOMINE HYDROCHLORIDE
     Indication: INFLAMMATORY BOWEL DISEASE
     Route: 048
     Dates: start: 20210123, end: 20210525
  8. PROBIOTIC [Concomitant]
     Active Substance: PROBIOTICS NOS
  9. CITRACAL CALCIUM [Concomitant]
  10. DICYCLOMINE 10MG CAPSULES. GENERIC NAME: DICYCLOMINE CAPSULES MYLAN 00378161001 [Suspect]
     Active Substance: DICYCLOMINE HYDROCHLORIDE
     Indication: ANAL INCONTINENCE
     Route: 048
     Dates: start: 20210123, end: 20210525
  11. DELZICOL/ASACOL [Concomitant]
  12. ASPIRIN 81 [Concomitant]
     Active Substance: ASPIRIN
  13. CRANBERRY SUPPLEMENT [Concomitant]
  14. OMEPRAZOLE. [Concomitant]
     Active Substance: OMEPRAZOLE
  15. SENTRUM SILVER MULTIVITAMIN [Concomitant]
  16. TIZANIDINE. [Concomitant]
     Active Substance: TIZANIDINE
  17. POTASSIUM [Concomitant]
     Active Substance: POTASSIUM
  18. FOXIMAX INFUSION [Concomitant]
  19. OMEGA XL FISH OIL [Concomitant]
  20. VITAMIN B12 [Concomitant]
     Active Substance: CYANOCOBALAMIN
  21. ATENOLOL. [Concomitant]
     Active Substance: ATENOLOL
  22. SYNTHROID [Concomitant]
     Active Substance: LEVOTHYROXINE SODIUM
  23. METFORMIN [Concomitant]
     Active Substance: METFORMIN HYDROCHLORIDE
  24. MOBIC [Concomitant]
     Active Substance: MELOXICAM
  25. TOTAL RESTORE [Concomitant]
  26. IRON [Concomitant]
     Active Substance: IRON

REACTIONS (4)
  - Skin laceration [None]
  - Dizziness [None]
  - Head injury [None]
  - Balance disorder [None]

NARRATIVE: CASE EVENT DATE: 20210522
